FAERS Safety Report 15322440 (Version 1)
Quarter: 2018Q4

REPORT INFORMATION
  Report Type: Spontaneous
  Country: US (occurrence: US)
  Receive Date: 20180827
  Receipt Date: 20180827
  Transmission Date: 20190204
  Serious: No
  Sender: FDA-Public Use
  Company Number: US-TEVA-2018-US-947801

PATIENT
  Sex: Male

DRUGS (1)
  1. PREDNISONE WATSON [Suspect]
     Active Substance: PREDNISONE
     Indication: DERMATITIS CONTACT

REACTIONS (1)
  - Drug ineffective [Unknown]
